FAERS Safety Report 8172160-0 (Version None)
Quarter: 2012Q1

REPORT INFORMATION
  Report Type: 
  Country: None (occurrence: None)
  Receive Date: 20120228
  Receipt Date: 20120221
  Transmission Date: 20120608
  Serious: Yes (Other)
  Sender: FDA-Public Use
  Company Number: GB-MERCK-1110GBR00091

PATIENT
  Age: 85 Year
  Sex: Female
  Weight: 31 kg

DRUGS (10)
  1. CETOSTEARYL ALCOHOL AND PHENOXYETHANOL AND SODIUM LAURYL SULFATE [Concomitant]
     Indication: DRY SKIN
     Route: 065
     Dates: start: 20100528
  2. ZOPICLONE [Concomitant]
     Indication: DEMENTIA ALZHEIMER'S TYPE
     Route: 065
     Dates: start: 20100729
  3. FOSAMAX [Suspect]
     Indication: PROPHYLAXIS
     Route: 048
     Dates: start: 20100706, end: 20120123
  4. DIAZEPAM [Concomitant]
     Indication: DEMENTIA ALZHEIMER'S TYPE
     Route: 065
     Dates: start: 20091028
  5. CARBOHYDRATES (UNSPECIFIED) AND FAT (UNSPECIFIED) AND MINERALS (UNSPEC [Concomitant]
     Indication: ASTHENIA
     Route: 065
     Dates: start: 20110303
  6. DIAZEPAM [Concomitant]
     Route: 065
     Dates: start: 20091028
  7. LACTULOSE [Concomitant]
     Indication: CONSTIPATION
     Route: 065
     Dates: start: 20100831
  8. ACETAMINOPHEN [Concomitant]
     Indication: ANALGESIC THERAPY
     Route: 065
     Dates: start: 20091123
  9. CALCIUM CARBONATE AND CHOLECALCIFEROL [Concomitant]
     Indication: PROPHYLAXIS
     Route: 065
     Dates: start: 20100706
  10. SERTRALINE HYDROCHLORIDE [Concomitant]
     Indication: DEMENTIA ALZHEIMER'S TYPE
     Route: 065
     Dates: start: 20091028

REACTIONS (9)
  - OROPHARYNGEAL BLISTERING [None]
  - ORAL CANDIDIASIS [None]
  - OEDEMA MOUTH [None]
  - WRONG TECHNIQUE IN DRUG USAGE PROCESS [None]
  - TONGUE BLISTERING [None]
  - LIP BLISTER [None]
  - LIP SWELLING [None]
  - STAPHYLOCOCCAL INFECTION [None]
  - DYSPHAGIA [None]
